FAERS Safety Report 13399594 (Version 1)
Quarter: 2017Q2

REPORT INFORMATION
  Report Type: Spontaneous
  Country: US (occurrence: US)
  Receive Date: 20170403
  Receipt Date: 20170403
  Transmission Date: 20170830
  Serious: Yes (Disabling)
  Sender: FDA-Public Use
  Company Number: None

PATIENT
  Age: 69 Year
  Sex: Male
  Weight: 68.85 kg

DRUGS (9)
  1. CEFDINIR CAP 300MG [Suspect]
     Active Substance: CEFDINIR
     Indication: SINUSITIS BACTERIAL
     Dosage: ?          QUANTITY:20 CAPSULE(S);?
     Route: 048
     Dates: start: 20170330
  2. VALIUM [Concomitant]
     Active Substance: DIAZEPAM
  3. NORVASC [Concomitant]
     Active Substance: AMLODIPINE BESYLATE
  4. COZAAR [Concomitant]
     Active Substance: LOSARTAN POTASSIUM
  5. CASODEX [Concomitant]
     Active Substance: BICALUTAMIDE
  6. VITAMIN D3 [Concomitant]
     Active Substance: CHOLECALCIFEROL
  7. ATENOLOL. [Concomitant]
     Active Substance: ATENOLOL
  8. ASPIRIN. [Concomitant]
     Active Substance: ASPIRIN
  9. ZOLOFT [Concomitant]
     Active Substance: SERTRALINE HYDROCHLORIDE

REACTIONS (2)
  - Nausea [None]
  - Diarrhoea [None]

NARRATIVE: CASE EVENT DATE: 20170308
